FAERS Safety Report 7094435-9 (Version None)
Quarter: 2010Q4

REPORT INFORMATION
  Report Type: 
  Country: None (occurrence: None)
  Receive Date: 20101110
  Receipt Date: 20101028
  Transmission Date: 20110411
  Serious: Yes (Hospitalization)
  Sender: FDA-Public Use
  Company Number: PHHY2010JP20773

PATIENT
  Age: 14 Year
  Sex: Female

DRUGS (8)
  1. TEGRETOL [Suspect]
     Indication: EPILEPSY
     Dosage: 500 MG
     Route: 048
  2. TEGRETOL [Suspect]
     Dosage: LOW DOSE
     Route: 048
     Dates: end: 20100923
  3. FERO-GRADUMET [Concomitant]
     Dosage: UNK
     Route: 048
  4. ADETPHOS [Concomitant]
     Dosage: 100 MG
     Route: 048
  5. MERISLON [Concomitant]
     Dosage: 12 MG, UNK
     Route: 048
  6. LOCOID [Concomitant]
     Dosage: UNK
  7. BETAMETHASONE [Concomitant]
     Dosage: UNK
  8. HIRUDOID [Concomitant]
     Dosage: UNK

REACTIONS (4)
  - ANTICONVULSANT DRUG LEVEL DECREASED [None]
  - ANTICONVULSANT DRUG LEVEL INCREASED [None]
  - DEHYDRATION [None]
  - THIRST [None]
